FAERS Safety Report 7390676-1 (Version None)
Quarter: 2011Q2

REPORT INFORMATION
  Report Type: 
  Country: None (occurrence: None)
  Receive Date: 20110404
  Receipt Date: 20110326
  Transmission Date: 20111010
  Serious: No
  Sender: FDA-Public Use
  Company Number: US-BIOGENIDEC-2011BI004666

PATIENT
  Age: 51 Year
  Sex: Male

DRUGS (2)
  1. TYSABRI [Suspect]
     Indication: MULTIPLE SCLEROSIS
     Route: 042
     Dates: start: 20080630
  2. ANTIHISTAMINE (NOS) [Concomitant]
     Indication: PREMEDICATION

REACTIONS (5)
  - VISUAL IMPAIRMENT [None]
  - MUSCLE ATROPHY [None]
  - MUSCULAR WEAKNESS [None]
  - FATIGUE [None]
  - URTICARIA [None]
